FAERS Safety Report 10184119 (Version 1)
Quarter: 2014Q2

REPORT INFORMATION
  Report Type: Spontaneous
  Country: FR (occurrence: FR)
  Receive Date: 20140520
  Receipt Date: 20140520
  Transmission Date: 20141212
  Serious: Yes (Hospitalization, Other)
  Sender: FDA-Public Use
  Company Number: FR-ASTRAZENECA-2014SE34299

PATIENT
  Age: 23142 Day
  Sex: Male

DRUGS (13)
  1. INEXIUM [Suspect]
     Route: 048
     Dates: start: 20140220, end: 20140302
  2. AUGMENTIN [Concomitant]
     Indication: CITROBACTER INFECTION
     Dates: start: 20140129, end: 20140204
  3. AUGMENTIN [Concomitant]
     Indication: CITROBACTER INFECTION
     Dates: start: 201402, end: 20140210
  4. FLAGYL [Concomitant]
     Indication: CITROBACTER INFECTION
     Dates: start: 20140129, end: 20140204
  5. ROCEPHINE [Concomitant]
     Indication: ENDOCARDITIS
     Route: 042
     Dates: start: 20140204, end: 201402
  6. GENTALLINE [Concomitant]
     Indication: ENDOCARDITIS
     Route: 042
     Dates: start: 20140204, end: 201402
  7. GENTALLINE [Concomitant]
     Indication: ENDOCARDITIS
     Route: 042
     Dates: start: 201402, end: 20140210
  8. LOXEN [Concomitant]
     Dates: start: 20140210
  9. TRAMADOL [Concomitant]
     Dates: start: 20140210
  10. LOVENOX [Concomitant]
     Dates: start: 20140210
  11. LASILIX [Concomitant]
     Dates: start: 20140210
  12. TOBRAMYCINE [Concomitant]
     Indication: ENDOCARDITIS
     Dates: start: 20140210, end: 20140215
  13. CLAFORAN [Concomitant]
     Indication: ENDOCARDITIS
     Route: 042
     Dates: start: 20140210, end: 201403

REACTIONS (8)
  - Renal failure [Recovering/Resolving]
  - Lymphocytosis [Recovering/Resolving]
  - Eosinophilia [Recovered/Resolved]
  - T-lymphocyte count increased [Unknown]
  - CD4/CD8 ratio decreased [Unknown]
  - Tubulointerstitial nephritis [Recovering/Resolving]
  - Epstein-Barr virus infection [Unknown]
  - Leukocytosis [Unknown]
